FAERS Safety Report 11163833 (Version 2)
Quarter: 2015Q2

REPORT INFORMATION
  Report Type: Spontaneous
  Country: PL (occurrence: PL)
  Receive Date: 20150604
  Receipt Date: 20150617
  Transmission Date: 20150821
  Serious: Yes (Hospitalization)
  Sender: FDA-Public Use
  Company Number: PL-MERCK-1506POL002151

PATIENT
  Age: 71 Year
  Sex: Female

DRUGS (6)
  1. GLUCOBAY [Concomitant]
     Active Substance: ACARBOSE
     Indication: DIABETES MELLITUS
     Dosage: 50 MG, TID
     Route: 048
     Dates: end: 20150530
  2. JANUVIA [Suspect]
     Active Substance: SITAGLIPTIN PHOSPHATE
     Indication: DIABETES MELLITUS
     Dosage: 100 MG 1 TABLET A DAY
     Route: 048
     Dates: start: 2013
  3. GLUCOBAY [Concomitant]
     Active Substance: ACARBOSE
     Dosage: 100 MG, TID
     Route: 048
     Dates: start: 20150530
  4. TRAMAL [Concomitant]
     Active Substance: TRAMADOL
     Dosage: UNK
  5. SIOFOR [Concomitant]
     Active Substance: METFORMIN HYDROCHLORIDE
     Indication: DIABETES MELLITUS
     Dosage: 750 MG, QD
     Route: 048
  6. FUROSEMIDE. [Concomitant]
     Active Substance: FUROSEMIDE
     Dosage: UNK
     Route: 048

REACTIONS (3)
  - Blood glucose fluctuation [Not Recovered/Not Resolved]
  - Drug prescribing error [Unknown]
  - Glomerular filtration rate decreased [Unknown]

NARRATIVE: CASE EVENT DATE: 2015
